FAERS Safety Report 22657667 (Version 1)
Quarter: 2023Q2

REPORT INFORMATION
  Report Type: Report from Study
  Country: IL (occurrence: IL)
  Receive Date: 20230630
  Receipt Date: 20230630
  Transmission Date: 20230721
  Serious: Yes (Life-Threatening, Hospitalization)
  Sender: FDA-Public Use
  Company Number: IL-GENMAB-2023-00816

PATIENT
  Age: 65 Year
  Sex: Female
  Weight: 67 kg

DRUGS (7)
  1. EPCORITAMAB [Suspect]
     Active Substance: EPCORITAMAB
     Indication: Follicular lymphoma
     Dosage: 48 MG, EVERY 1 WEEKS
     Route: 058
     Dates: start: 20230215, end: 20230417
  2. LENALIDOMIDE [Suspect]
     Active Substance: LENALIDOMIDE
     Indication: Follicular lymphoma
     Dosage: DAYS 1-21 OF EACH 28 DAY CYCLE
     Route: 048
     Dates: start: 20230215, end: 20230506
  3. RITUXIMAB [Suspect]
     Active Substance: RITUXIMAB
     Indication: Follicular lymphoma
     Dosage: 375 MG/M2, EVERY 4 WEEKS
     Route: 042
     Dates: start: 20230215, end: 20230417
  4. ASPIRIN [Concomitant]
     Active Substance: ASPIRIN
     Indication: Thrombosis prophylaxis
     Dosage: 100 MG, EVERY 1 DAYS
     Dates: start: 20230215
  5. ALLOPURINOL [Concomitant]
     Active Substance: ALLOPURINOL
     Indication: Prophylaxis
     Dosage: 300 MG, EVERY 1 DAYS
     Dates: start: 20230115
  6. LEVOTHYROXINE [Concomitant]
     Active Substance: LEVOTHYROXINE
     Indication: Hypothyroidism
     Dosage: 150 MG, EVERY 1 DAYS
     Dates: start: 2018
  7. LOSEC [Concomitant]
     Active Substance: OMEPRAZOLE
     Indication: Antacid therapy
     Dosage: 20 MG, EVERY 1 DAYS
     Dates: start: 20230215

REACTIONS (3)
  - Fungal sepsis [Not Recovered/Not Resolved]
  - Neutropenia [Recovered/Resolved]
  - Pseudomonas infection [Not Recovered/Not Resolved]

NARRATIVE: CASE EVENT DATE: 20230507
